FAERS Safety Report 8000989-8 (Version None)
Quarter: 2011Q4

REPORT INFORMATION
  Report Type: 
  Country: None (occurrence: None)
  Receive Date: 20111222
  Receipt Date: 20110124
  Transmission Date: 20120403
  Serious: No
  Sender: FDA-Public Use
  Company Number: US-GLAXOSMITHKLINE-A0908604A

PATIENT
  Age: 47 Year
  Sex: Female

DRUGS (6)
  1. FLONASE [Suspect]
     Indication: RHINITIS ALLERGIC
     Dosage: 1SPR AT NIGHT
     Route: 045
     Dates: start: 20100101
  2. ADVAIR DISKUS 100/50 [Concomitant]
  3. VENTOLIN [Concomitant]
  4. ALBUTEROL [Concomitant]
  5. IPRATROPIUM BROMIDE [Concomitant]
     Route: 055
  6. THYROID MEDICATION [Concomitant]

REACTIONS (1)
  - EPISTAXIS [None]
